FAERS Safety Report 10661370 (Version 1)
Quarter: 2014Q4

REPORT INFORMATION
  Report Type: Spontaneous
  Country: GB (occurrence: GB)
  Receive Date: 20141218
  Receipt Date: 20141218
  Transmission Date: 20150529
  Serious: Yes (Hospitalization)
  Sender: FDA-Public Use
  Company Number: GB-TEVA-528997ISR

PATIENT
  Age: 71 Year
  Sex: Female
  Weight: 64 kg

DRUGS (2)
  1. XARELTO [Interacting]
     Active Substance: RIVAROXABAN
     Indication: ATRIAL FIBRILLATION
     Route: 048
     Dates: start: 20140609
  2. DILTIAZEM [Suspect]
     Active Substance: DILTIAZEM

REACTIONS (5)
  - Haemorrhage [Recovered/Resolved with Sequelae]
  - Drug interaction [Unknown]
  - Catheter site haemorrhage [Recovered/Resolved with Sequelae]
  - Haemoptysis [Recovered/Resolved with Sequelae]
  - Contusion [Recovered/Resolved with Sequelae]

NARRATIVE: CASE EVENT DATE: 20140823
